FAERS Safety Report 23516150 (Version 1)
Quarter: 2024Q1

REPORT INFORMATION
  Report Type: Spontaneous
  Country: JP (occurrence: JP)
  Receive Date: 20240213
  Receipt Date: 20240213
  Transmission Date: 20240409
  Serious: Yes (Other)
  Sender: FDA-Public Use
  Company Number: JP-CLINIGEN-JP-CLI-2024-000064

PATIENT
  Age: 24 Year
  Sex: Male

DRUGS (2)
  1. FOSCAVIR [Suspect]
     Active Substance: FOSCARNET SODIUM
     Indication: Oesophageal ulcer
     Dosage: 1440 MILLIGRAM, TID
     Route: 042
     Dates: start: 20230502, end: 20230506
  2. FOSCAVIR [Suspect]
     Active Substance: FOSCARNET SODIUM
     Indication: Cytomegalovirus infection

REACTIONS (8)
  - Electrocardiogram QT prolonged [Recovering/Resolving]
  - Hypocalcaemia [Recovered/Resolved]
  - Hypoaesthesia [Recovered/Resolved]
  - Diarrhoea [Recovered/Resolved]
  - Rash [Recovered/Resolved]
  - Headache [Unknown]
  - Malaise [Unknown]
  - Off label use [Unknown]

NARRATIVE: CASE EVENT DATE: 20230504
